FAERS Safety Report 7025118-9 (Version None)
Quarter: 2010Q4

REPORT INFORMATION
  Report Type: 
  Country: None (occurrence: None)
  Receive Date: 20101001
  Receipt Date: 20100927
  Transmission Date: 20110411
  Serious: Yes (Death, Other)
  Sender: FDA-Public Use
  Company Number: JP-JNJFOC-20100907995

PATIENT
  Age: 60 Year
  Sex: Male

DRUGS (5)
  1. LOPEMIN [Suspect]
     Indication: DIARRHOEA
     Route: 048
  2. DUROTEP [Suspect]
     Indication: NEOPLASM MALIGNANT
     Route: 062
  3. MORPHINE SULFATE [Concomitant]
     Indication: PAIN
     Route: 048
  4. FLUOROURACIL [Concomitant]
     Indication: HEAD AND NECK CANCER
     Route: 041
  5. CISPLATIN [Concomitant]
     Indication: HEAD AND NECK CANCER
     Route: 041

REACTIONS (7)
  - ABDOMINAL DISTENSION [None]
  - ABNORMAL FAECES [None]
  - DEATH [None]
  - ENTERITIS INFECTIOUS [None]
  - FLATULENCE [None]
  - PORTAL VENOUS GAS [None]
  - SHOCK [None]
